FAERS Safety Report 23062988 (Version 1)
Quarter: 2023Q4

REPORT INFORMATION
  Report Type: Spontaneous
  Country: US (occurrence: None)
  Receive Date: 20231010
  Receipt Date: 20231010
  Transmission Date: 20240109
  Serious: Yes (Other)
  Sender: FDA-Public Use
  Company Number: None

PATIENT
  Age: 38 Year
  Sex: Male
  Weight: 63.96 kg

DRUGS (1)
  1. CABENUVA [Suspect]
     Active Substance: CABOTEGRAVIR\RILPIVIRINE
     Indication: HIV infection
     Dosage: OTHER FREQUENCY : IM EVERY TWO MONTH;?
     Route: 030
     Dates: start: 20230426

REACTIONS (6)
  - Weight decreased [None]
  - Leukopenia [None]
  - Thrombocytopenia [None]
  - Lymphopenia [None]
  - Neutropenia [None]
  - CD4 lymphocytes decreased [None]

NARRATIVE: CASE EVENT DATE: 20230726
